FAERS Safety Report 4980830-8 (Version None)
Quarter: 2006Q2

REPORT INFORMATION
  Report Type: 
  Country: None (occurrence: None)
  Receive Date: 20060424
  Receipt Date: 20051207
  Transmission Date: 20061013
  Serious: Yes (Hospitalization, Disabling)
  Sender: FDA-Public Use
  Company Number: US-MERCK-0512USA01451

PATIENT
  Age: 76 Year
  Sex: Female
  Weight: 63 kg

DRUGS (5)
  1. VIOXX [Suspect]
     Indication: ARTHRITIS
     Route: 048
     Dates: start: 20010706, end: 20030101
  2. CELEBREX [Concomitant]
     Route: 065
  3. LEVOTHYROXINE SODIUM [Concomitant]
     Route: 065
  4. LIPITOR [Concomitant]
     Route: 065
  5. ASPIRIN [Concomitant]
     Route: 065

REACTIONS (15)
  - AMNESIA [None]
  - ANXIETY [None]
  - CYSTITIS [None]
  - DEPRESSION [None]
  - EMBOLISM [None]
  - FIBROMYALGIA [None]
  - KIDNEY INFECTION [None]
  - PAIN IN EXTREMITY [None]
  - PELVIC ABSCESS [None]
  - PELVIC HAEMATOMA [None]
  - POST-TRAUMATIC STRESS DISORDER [None]
  - PSEUDOMONAS INFECTION [None]
  - RENAL DISORDER [None]
  - URETERIC OBSTRUCTION [None]
  - URINARY TRACT INFECTION [None]
